FAERS Safety Report 12265217 (Version 1)
Quarter: 2016Q2

REPORT INFORMATION
  Report Type: Spontaneous
  Country: US (occurrence: US)
  Receive Date: 20160413
  Receipt Date: 20160413
  Transmission Date: 20160815
  Serious: Yes (Death)
  Sender: FDA-Public Use
  Company Number: US-SIGMA-TAU US-2016STPI000250

PATIENT
  Age: 68 Year
  Sex: Female

DRUGS (1)
  1. MATULANE [Suspect]
     Active Substance: PROCARBAZINE HYDROCHLORIDE
     Indication: NON-HODGKIN^S LYMPHOMA
     Dosage: 50 MG, HS AS DIRECTED
     Route: 048
     Dates: start: 20160218

REACTIONS (1)
  - Death [Fatal]

NARRATIVE: CASE EVENT DATE: 20160307
